FAERS Safety Report 7349433-4 (Version None)
Quarter: 2011Q1

REPORT INFORMATION
  Report Type: 
  Country: None (occurrence: None)
  Receive Date: 20110314
  Receipt Date: 20101202
  Transmission Date: 20110831
  Serious: No
  Sender: FDA-Public Use
  Company Number: US-ABBOTT-10P-163-0689646-00

PATIENT
  Sex: Male

DRUGS (2)
  1. DEPAKOTE [Suspect]
     Indication: BIPOLAR DISORDER
  2. CHLORTHALIDONE [Concomitant]
     Indication: OEDEMA PERIPHERAL
     Dates: start: 20080101

REACTIONS (2)
  - HYPONATRAEMIA [None]
  - BLOOD CHLORIDE DECREASED [None]
